FAERS Safety Report 7356547-1 (Version None)
Quarter: 2011Q1

REPORT INFORMATION
  Report Type: 
  Country: None (occurrence: None)
  Receive Date: 20110316
  Receipt Date: 20110302
  Transmission Date: 20110831
  Serious: Yes (Other)
  Sender: FDA-Public Use
  Company Number: PHHY2010JP25613

PATIENT
  Age: 31 Year
  Sex: Male

DRUGS (4)
  1. TOCILIZUMAB [Concomitant]
     Indication: STILL'S DISEASE ADULT ONSET
  2. SANDIMMUNE [Suspect]
     Indication: STILL'S DISEASE ADULT ONSET
     Route: 042
  3. PREDNISOLONE [Concomitant]
     Indication: STILL'S DISEASE ADULT ONSET
  4. DEXAMETHASONE PALMITATE [Concomitant]
     Indication: STILL'S DISEASE ADULT ONSET

REACTIONS (5)
  - THROMBOTIC THROMBOCYTOPENIC PURPURA [None]
  - STILL'S DISEASE ADULT ONSET [None]
  - LIVER DISORDER [None]
  - PNEUMONIA BACTERIAL [None]
  - CYTOMEGALOVIRUS INFECTION [None]
